FAERS Safety Report 24884051 (Version 2)
Quarter: 2025Q3

REPORT INFORMATION
  Report Type: Spontaneous
  Country: CN (occurrence: CN)
  Receive Date: 20250124
  Receipt Date: 20250804
  Transmission Date: 20251020
  Serious: Yes (Other)
  Sender: ALEXION PHARMACEUTICALS
  Company Number: CN-ASTRAZENECA-202501CHN019118CN

PATIENT
  Age: 74 Year
  Sex: Male
  Weight: 70 kg

DRUGS (5)
  1. BUDESONIDE [Suspect]
     Active Substance: BUDESONIDE
     Indication: Chronic obstructive pulmonary disease
     Dosage: 1 MILLIGRAM, BID
     Dates: start: 20250112, end: 20250112
  2. ACETYLCYSTEINE [Suspect]
     Active Substance: ACETYLCYSTEINE
     Indication: Chronic obstructive pulmonary disease
     Dosage: 0.3 GRAM, BID
     Dates: start: 20250112, end: 20250112
  3. ALBUTEROL [Concomitant]
     Active Substance: ALBUTEROL
     Indication: Asphyxia
     Route: 065
  4. ALBUTEROL [Concomitant]
     Active Substance: ALBUTEROL
     Indication: Hyperhidrosis
  5. ALBUTEROL [Concomitant]
     Active Substance: ALBUTEROL
     Indication: Orthopnoea

REACTIONS (3)
  - Hyperhidrosis [Recovering/Resolving]
  - Asphyxia [Recovering/Resolving]
  - Orthopnoea [Recovering/Resolving]

NARRATIVE: CASE EVENT DATE: 20250112
